FAERS Safety Report 9406616 (Version 1)
Quarter: 2013Q3

REPORT INFORMATION
  Report Type: Spontaneous
  Country: US (occurrence: US)
  Receive Date: 20130718
  Receipt Date: 20130718
  Transmission Date: 20140515
  Serious: Yes (Hospitalization, Other)
  Sender: FDA-Public Use
  Company Number: US-SANOFI-AVENTIS-2013SA071377

PATIENT
  Sex: 0

DRUGS (2)
  1. LANTUS [Suspect]
     Indication: DIABETES MELLITUS
     Route: 065
  2. HUMALOG [Concomitant]

REACTIONS (4)
  - Coronary artery disease [Unknown]
  - Aortic valve disease [Unknown]
  - Infection [Unknown]
  - Glycosylated haemoglobin increased [Unknown]
